FAERS Safety Report 9539157 (Version 1)
Quarter: 2013Q2

REPORT INFORMATION
  Report Type: Spontaneous
  Country: US (occurrence: None)
  Receive Date: 20130521
  Receipt Date: 20130521
  Transmission Date: 20140414
  Serious: No
  Sender: FDA-Public Use
  Company Number: 1000043070

PATIENT
  Age: 87 Year
  Sex: Male

DRUGS (18)
  1. TUDORZA PRESSAIR (ACLIDINIUM BROMIDE) (400 MICROGRAM, POWDER) [Suspect]
     Indication: CHRONIC OBSTRUCTIVE PULMONARY DISEASE
     Dosage: (400 MCG, 2 IN 1 D)
     Route: 048
     Dates: start: 20130227
  2. TUDORZA PRESSAIR (ACLIDINIUM BROMIDE) (400 MICROGRAM, POWDER) [Suspect]
     Indication: EMPHYSEMA
     Dosage: (400 MCG, 2 IN 1 D)
     Route: 048
     Dates: start: 20130227
  3. RANEXA [Concomitant]
  4. BRILINTA [Concomitant]
  5. METOPROLOL [Concomitant]
  6. ISOSORBIDE [Concomitant]
  7. FINASTERIDE [Concomitant]
  8. ASPIRIN [Concomitant]
  9. FUROSEMIDE [Concomitant]
  10. SIMVASTATIN [Concomitant]
  11. OMEPRAZOLE [Concomitant]
  12. MAGNESIUM [Concomitant]
  13. CALCIUM [Concomitant]
  14. VITAMIN C [Concomitant]
  15. PROBIOTIC [Concomitant]
  16. OMEGA-3 FATTY ACID [Concomitant]
  17. TRUNATURE PROSTATE HEALTH COMPLEX [Concomitant]
  18. FIBER [Concomitant]

REACTIONS (5)
  - Diarrhoea [None]
  - Dyspnoea [None]
  - Headache [None]
  - Eye pain [None]
  - Lethargy [None]
